FAERS Safety Report 6558258-9 (Version None)
Quarter: 2010Q1

REPORT INFORMATION
  Report Type: 
  Country: None (occurrence: None)
  Receive Date: 20100128
  Receipt Date: 20100128
  Transmission Date: 20100710
  Serious: No
  Sender: FDA-Public Use
  Company Number: None

PATIENT
  Sex: Male
  Weight: 78.9259 kg

DRUGS (1)
  1. ZETIA [Suspect]
     Indication: BLOOD CHOLESTEROL ABNORMAL
     Dosage: 1 DAILY
     Dates: start: 20090901, end: 20090930

REACTIONS (5)
  - ARTHROPATHY [None]
  - DISCOMFORT [None]
  - MUSCLE DISORDER [None]
  - NONSPECIFIC REACTION [None]
  - PAIN [None]
